FAERS Safety Report 4282160-9 (Version None)
Quarter: 2004Q1

REPORT INFORMATION
  Report Type: 
  Country: None (occurrence: None)
  Receive Date: 20040112
  Receipt Date: 20031208
  Transmission Date: 20041129
  Serious: No
  Sender: FDA-Public Use
  Company Number: PHEH2003US11219

PATIENT
  Age: 58 Year
  Sex: Female
  Weight: 58.5 kg

DRUGS (7)
  1. ELIDEL [Suspect]
     Indication: ECZEMA
     Dosage: QD AND BID, TOPICAL
     Route: 061
     Dates: start: 20030801
  2. TRIAMCINOLONE [Concomitant]
  3. COZAAR [Concomitant]
  4. LIPITOR [Concomitant]
  5. SECTRAL ^AVENTIS^ (ACEBUTOLOL HYDROCHLORIDE) [Concomitant]
  6. VITAMIN C [Concomitant]
  7. ASPIRIN [Concomitant]

REACTIONS (1)
  - BREAST DISCHARGE [None]
